FAERS Safety Report 4786166-2 (Version None)
Quarter: 2005Q4

REPORT INFORMATION
  Report Type: 
  Country: None (occurrence: None)
  Receive Date: 20051003
  Receipt Date: 20050923
  Transmission Date: 20060501
  Serious: Yes (Death)
  Sender: FDA-Public Use
  Company Number: PHHO2005PH14989

PATIENT
  Sex: Male

DRUGS (1)
  1. GLEEVEC [Suspect]
     Indication: CHRONIC MYELOID LEUKAEMIA
     Dosage: 800 MG, QD
     Route: 048
     Dates: start: 20040601, end: 20050901

REACTIONS (2)
  - MULTI-ORGAN FAILURE [None]
  - PNEUMONIA [None]
